FAERS Safety Report 4458271-1 (Version None)
Quarter: 2004Q3

REPORT INFORMATION
  Report Type: 
  Country: None (occurrence: None)
  Receive Date: 20040917
  Receipt Date: 20040218
  Transmission Date: 20050211
  Serious: Yes (Hospitalization)
  Sender: FDA-Public Use
  Company Number: US-JNJFOC-20040204504

PATIENT
  Age: 33 Year
  Sex: Female

DRUGS (1)
  1. TOPAMAX [Suspect]
     Indication: SCHIZOPHRENIA, PARANOID TYPE
     Dosage: 100 MG, ORAL
     Route: 048

REACTIONS (1)
  - ANXIETY [None]
